FAERS Safety Report 18914561 (Version 2)
Quarter: 2021Q1

REPORT INFORMATION
  Report Type: Spontaneous
  Country: US (occurrence: US)
  Receive Date: 20210219
  Receipt Date: 20210310
  Transmission Date: 20210420
  Serious: No
  Sender: FDA-Public Use
  Company Number: US-BIOVITRUM-2021US1506

PATIENT
  Sex: Male
  Weight: 6 kg

DRUGS (5)
  1. SYNAGIS [Suspect]
     Active Substance: PALIVIZUMAB
     Indication: PREMATURE BABY
     Dosage: 100 MG/1ML VL LIQUID
     Route: 030
     Dates: start: 20201223
  2. VITAMIN D3 [Concomitant]
     Active Substance: CHOLECALCIFEROL
     Dosage: 10 (400)/ ML DROPS
  3. SYNAGIS [Suspect]
     Active Substance: PALIVIZUMAB
     Indication: VENTRICULAR SEPTAL DEFECT
  4. PROBIOTIC PLUS COLUSTRUM [Concomitant]
  5. LASIX [Concomitant]
     Active Substance: FUROSEMIDE

REACTIONS (4)
  - Vomiting [Unknown]
  - Lethargy [Unknown]
  - Nasal congestion [Unknown]
  - Fatigue [Unknown]
